FAERS Safety Report 8937033 (Version 1)
Quarter: 2012Q4

REPORT INFORMATION
  Report Type: 
  Country: ES (occurrence: ES)
  Receive Date: 20121130
  Receipt Date: 20121130
  Transmission Date: 20130627
  Serious: Yes (Other)
  Sender: FDA-Public Use
  Company Number: PHHY2012ES109309

PATIENT
  Sex: Female

DRUGS (2)
  1. OMNITROPE [Suspect]
     Indication: GROWTH RETARDATION
     Route: 058
  2. OMNITROPE [Suspect]
     Indication: TURNER^S SYNDROME

REACTIONS (1)
  - Toxic skin eruption [Unknown]
